FAERS Safety Report 7102689-5 (Version None)
Quarter: 2010Q4

REPORT INFORMATION
  Report Type: 
  Country: None (occurrence: None)
  Receive Date: 20101115
  Receipt Date: 20101104
  Transmission Date: 20110411
  Serious: Yes (Other)
  Sender: FDA-Public Use
  Company Number: GB-JNJFOC-20101102076

PATIENT
  Sex: Female

DRUGS (1)
  1. KETOCONAZOLE [Suspect]
     Indication: ILL-DEFINED DISORDER
     Route: 061

REACTIONS (4)
  - BLISTER [None]
  - PRURITUS [None]
  - RASH MACULAR [None]
  - THERMAL BURN [None]
